FAERS Safety Report 7545908-3 (Version None)
Quarter: 2011Q2

REPORT INFORMATION
  Report Type: 
  Country: None (occurrence: None)
  Receive Date: 20110607
  Receipt Date: 20110524
  Transmission Date: 20111010
  Serious: Yes (Other)
  Sender: FDA-Public Use
  Company Number: 20110422

PATIENT
  Sex: Male

DRUGS (1)
  1. DEXAMETHASONE SODIUM PHOSPHATE [Suspect]
     Indication: TENDON INJURY
     Dosage: INJECTION NOS
     Dates: start: 20101201

REACTIONS (1)
  - INJECTION SITE ANAESTHESIA [None]
